FAERS Safety Report 4944616-2 (Version None)
Quarter: 2006Q1

REPORT INFORMATION
  Report Type: 
  Country: None (occurrence: None)
  Receive Date: 20060315
  Receipt Date: 20060228
  Transmission Date: 20060701
  Serious: Yes (Death)
  Sender: FDA-Public Use
  Company Number: HU-ROCHE-439835

PATIENT
  Age: 76 Year
  Sex: Female

DRUGS (7)
  1. CLONAZEPAM [Suspect]
     Indication: DISORIENTATION
     Route: 048
     Dates: start: 20060115, end: 20060209
  2. TIAPRIDAL [Suspect]
     Indication: DISORIENTATION
     Dosage: INDICATION ALSO REPORTED AS SELF CONSCIOUS.
     Route: 048
     Dates: start: 20051215, end: 20060209
  3. SYNCUMAR [Suspect]
     Indication: ATRIAL FIBRILLATION
     Dosage: STRENGTH REPORTED AS 1-2 MG TBL.
     Route: 048
  4. DIGOXIN [Suspect]
     Indication: ATRIAL FIBRILLATION
     Route: 048
  5. GILEMAL [Suspect]
     Indication: DIABETES MELLITUS
     Route: 048
  6. MONO MACK DEPOT [Suspect]
     Route: 065
  7. BISOPROLOL [Suspect]
     Indication: ATRIAL FIBRILLATION
     Dosage: DRUG NAME REPORTED AS CAVIOGAL. INDICATION ALSO REPORTED AS HYPERTENSION.
     Route: 065

REACTIONS (4)
  - HYPERTHERMIA [None]
  - HYPOTENSION [None]
  - LOSS OF CONSCIOUSNESS [None]
  - NEUROLEPTIC MALIGNANT SYNDROME [None]
